FAERS Safety Report 4318838-8 (Version None)
Quarter: 2004Q1

REPORT INFORMATION
  Report Type: 
  Country: None (occurrence: None)
  Receive Date: 20040317
  Receipt Date: 20040317
  Transmission Date: 20041129
  Serious: Yes (Other)
  Sender: FDA-Public Use
  Company Number: None

PATIENT
  Sex: Female
  Weight: 92.0802 kg

DRUGS (2)
  1. LASIX [Suspect]
     Indication: HYPERTENSION
     Dosage: 2 DOSES PO QAM , 1 DOSE PO QHS
     Route: 048
  2. LASIX [Suspect]
     Indication: OEDEMA
     Dosage: 2 DOSES PO QAM , 1 DOSE PO QHS
     Route: 048

REACTIONS (3)
  - CONDITION AGGRAVATED [None]
  - OEDEMA PERIPHERAL [None]
  - PHARMACEUTICAL PRODUCT COMPLAINT [None]
